FAERS Safety Report 15357203 (Version 4)
Quarter: 2018Q4

REPORT INFORMATION
  Report Type: Spontaneous
  Country: EE (occurrence: EE)
  Receive Date: 20180906
  Receipt Date: 20181123
  Transmission Date: 20190204
  Serious: Yes (Hospitalization)
  Sender: FDA-Public Use
  Company Number: EE-ROCHE-2179045

PATIENT
  Age: 59 Year

DRUGS (27)
  1. NACL [Concomitant]
     Active Substance: SODIUM CHLORIDE
     Dosage: 0,9% AD 100ML I/V
     Route: 065
  2. VORTIOXETINE. [Concomitant]
     Active Substance: VORTIOXETINE
     Indication: NEURALGIA
  3. ROACTEMRA [Suspect]
     Active Substance: TOCILIZUMAB
     Indication: STILL^S DISEASE
     Route: 042
     Dates: start: 201701, end: 201705
  4. MEDROL [Concomitant]
     Active Substance: METHYLPREDNISOLONE
     Dosage: 16MG (IN THE MORNING) + 4 MG (LUNCHTIME) P/O ?IN THE DECREASING DOSE FROM 09/JUL TO 15/JUL
     Route: 048
  5. MEDROL [Concomitant]
     Active Substance: METHYLPREDNISOLONE
     Dosage: FROM 23/JUL TO 29/JUL?12 MG X 1 (MORNING)
     Route: 048
  6. MEDROL [Concomitant]
     Active Substance: METHYLPREDNISOLONE
     Dosage: 13/AUG TO 19/AUG ?6 MG X 1 (MORNING)
     Route: 048
  7. PANTOPRAZOL [Concomitant]
     Active Substance: PANTOPRAZOLE SODIUM
     Dosage: 20 MG X 1 TABLET P/O,
     Route: 048
  8. VENLAFAXINE [Concomitant]
     Active Substance: VENLAFAXINE HYDROCHLORIDE
     Indication: HEADACHE
  9. AMITRIPTYLLINE [Concomitant]
     Active Substance: AMITRIPTYLINE
     Indication: HEADACHE
  10. TREXAN (METHOTREXATE) [Concomitant]
     Active Substance: METHOTREXATE SODIUM
     Dosage: MAXIMUM DOSE: 15 MG, WEEKLY
     Route: 065
     Dates: start: 201111, end: 201203
  11. PLAQUENIL [Concomitant]
     Active Substance: HYDROXYCHLOROQUINE SULFATE
     Dosage: IN THE EVENING
     Route: 065
     Dates: start: 2014
  12. AMITRIPTYLLINE [Concomitant]
     Active Substance: AMITRIPTYLINE
     Indication: NEURALGIA
     Dosage: 25 MG X 1 TABLET IN THE EVENINGS P/O
     Route: 048
  13. NEBIVOLOL. [Concomitant]
     Active Substance: NEBIVOLOL
     Dosage: 2.5 MG X 1 TABLET P/O,
     Route: 048
  14. FOLVERLAN [Concomitant]
     Active Substance: FOLIC ACID
     Dosage: 5 MG P/O ON JUNE 30?ON SATURDAYS
     Route: 065
  15. LISTENON [Concomitant]
     Active Substance: SUCCINYLCHOLINE
  16. ROACTEMRA [Suspect]
     Active Substance: TOCILIZUMAB
     Route: 042
     Dates: start: 20170704
  17. MEDROL [Concomitant]
     Active Substance: METHYLPREDNISOLONE
     Dosage: FROM 16/JUL TO 22/JUL ?16 MG X 1 (MORNING)
     Route: 048
  18. MEDROL [Concomitant]
     Active Substance: METHYLPREDNISOLONE
     Dosage: 30/JUL TO 05/AUG ?10 MG X 1 (MORNING)
     Route: 048
  19. VORTIOXETINE. [Concomitant]
     Active Substance: VORTIOXETINE
     Indication: HEADACHE
  20. MEDROL [Concomitant]
     Active Substance: METHYLPREDNISOLONE
     Dosage: 27/AUG TO 02/SEP ?2 MG X 1 (MORNING)
     Route: 048
  21. TREXAN (METHOTREXATE) [Concomitant]
     Active Substance: METHOTREXATE SODIUM
     Route: 065
  22. MEDROL [Concomitant]
     Active Substance: METHYLPREDNISOLONE
     Dosage: 16MG (IN THE MORNING) + 8 MG (LUNCHTIME) P/O ?IN THE DECREASING DOSE FROM 06/JUL TO 08/JUL
     Route: 048
  23. MEDROL [Concomitant]
     Active Substance: METHYLPREDNISOLONE
     Dosage: 08/AUG TO 12/AUG?8 MG X 1 (MORNING)
     Route: 048
  24. MEDROL [Concomitant]
     Active Substance: METHYLPREDNISOLONE
     Dosage: 20/AUG TO 26/AUG ?4 MG X 1 (MORNING)
     Route: 048
  25. TREXAN (METHOTREXATE) [Concomitant]
     Active Substance: METHOTREXATE SODIUM
     Dosage: IN JUNE 29 AND JULY 6 P/O
     Route: 048
  26. VENLAFAXINE [Concomitant]
     Active Substance: VENLAFAXINE HYDROCHLORIDE
     Indication: NEURALGIA
  27. MAREVAN [Concomitant]
     Active Substance: WARFARIN SODIUM
     Dosage: MAREVAN 6MG X 1 AND INR
     Route: 065

REACTIONS (9)
  - Off label use [Unknown]
  - Exfoliative rash [Unknown]
  - Still^s disease [Unknown]
  - Pulmonary embolism [Unknown]
  - Paraesthesia [Unknown]
  - Deep vein thrombosis [Unknown]
  - Leukopenia [Unknown]
  - Intentional product use issue [Unknown]
  - Urticaria [Unknown]

NARRATIVE: CASE EVENT DATE: 2017
